FAERS Safety Report 8551349 (Version 4)
Quarter: 2014Q1

REPORT INFORMATION
  Report Type: Spontaneous
  Country: US (occurrence: US)
  Receive Date: 20120508
  Receipt Date: 20140102
  Transmission Date: 20141002
  Serious: Yes (Life-Threatening, Hospitalization, Other)
  Sender: FDA-Public Use
  Company Number: US-ASTRAZENECA-2012SE11078

PATIENT
  Age: 59 Year
  Sex: Male
  Weight: 70.3 kg

DRUGS (4)
  1. ZOLADEX [Suspect]
     Indication: PROSTATE CANCER
     Route: 058
     Dates: start: 201003
  2. ZOLADEX [Suspect]
     Indication: PROSTATE CANCER
     Route: 058
     Dates: start: 20110623
  3. TYLENOL [Concomitant]
     Route: 048
  4. CASODEX [Concomitant]
     Route: 048

REACTIONS (9)
  - Arterial injury [Unknown]
  - Injection site haemorrhage [Unknown]
  - Injection site haematoma [Unknown]
  - Hypotension [Unknown]
  - Asthenia [Unknown]
  - Activities of daily living impaired [Unknown]
  - Gait disturbance [Unknown]
  - Abdominal wall haematoma [Unknown]
  - Injection site pain [Unknown]
